FAERS Safety Report 6649410-2 (Version None)
Quarter: 2010Q1

REPORT INFORMATION
  Report Type: 
  Country: None (occurrence: None)
  Receive Date: 20100324
  Receipt Date: 20100315
  Transmission Date: 20100710
  Serious: Yes (Hospitalization)
  Sender: FDA-Public Use
  Company Number: FR-GENENTECH-299417

PATIENT
  Sex: Male

DRUGS (6)
  1. MABTHERA [Suspect]
     Indication: B-CELL LYMPHOMA
     Dosage: 660 MG, UNK
     Route: 042
     Dates: end: 20100128
  2. ARACYTINE [Suspect]
     Indication: B-CELL LYMPHOMA
     Dosage: 3500 MG, UNK
     Route: 042
     Dates: start: 20100128, end: 20100128
  3. CARBOPLATIN [Suspect]
     Indication: B-CELL LYMPHOMA
     Dosage: 440 MG, UNK
     Route: 042
     Dates: start: 20100127, end: 20100127
  4. DEXAMETHASONE [Suspect]
     Indication: B-CELL LYMPHOMA
     Dosage: UNK
     Route: 065
     Dates: start: 20100127, end: 20100130
  5. TAHOR [Suspect]
     Indication: DRUG USE FOR UNKNOWN INDICATION
     Dosage: UNK
     Route: 048
     Dates: end: 20100201
  6. PLAVIX [Suspect]
     Indication: DRUG USE FOR UNKNOWN INDICATION
     Dosage: UNK
     Route: 048
     Dates: end: 20100201

REACTIONS (4)
  - CONFUSIONAL STATE [None]
  - CYTOLYTIC HEPATITIS [None]
  - HYPONATRAEMIA [None]
  - PYREXIA [None]
